FAERS Safety Report 7582752-5 (Version None)
Quarter: 2011Q2

REPORT INFORMATION
  Report Type: 
  Country: None (occurrence: None)
  Receive Date: 20110630
  Receipt Date: 20110622
  Transmission Date: 20111010
  Serious: Yes (Other)
  Sender: FDA-Public Use
  Company Number: CN-PFIZER INC-2011142221

PATIENT
  Age: 69 Year
  Sex: Male

DRUGS (3)
  1. DANSHEN [Concomitant]
  2. CORDARONE [Suspect]
     Indication: ARRHYTHMIA
     Dosage: 200 MG, UNK
     Route: 048
     Dates: start: 20050101
  3. BETALOC [Concomitant]

REACTIONS (3)
  - ANGINA PECTORIS [None]
  - VISUAL ACUITY REDUCED [None]
  - VISION BLURRED [None]
